FAERS Safety Report 4663847-2 (Version None)
Quarter: 2005Q2

REPORT INFORMATION
  Report Type: 
  Country: None (occurrence: None)
  Receive Date: 20050516
  Receipt Date: 20050428
  Transmission Date: 20051028
  Serious: Yes (Life-Threatening)
  Sender: FDA-Public Use
  Company Number: DSA_26369_2005

PATIENT
  Age: 82 Year
  Sex: Male

DRUGS (3)
  1. TEVETEN [Suspect]
     Indication: HYPERTENSION
     Dosage: 600 MG Q DAY PO
     Route: 048
     Dates: start: 20040429
  2. ASCAL [Concomitant]
  3. HOEMOPATHIC DRUG [Concomitant]

REACTIONS (7)
  - BLOOD CALCIUM INCREASED [None]
  - BLOOD CREATININE INCREASED [None]
  - DYSPNOEA [None]
  - FALL [None]
  - LUNG NEOPLASM MALIGNANT [None]
  - RED BLOOD CELL SEDIMENTATION RATE INCREASED [None]
  - VENTRICULAR HYPERTROPHY [None]
